FAERS Safety Report 17726107 (Version 4)
Quarter: 2022Q1

REPORT INFORMATION
  Report Type: Spontaneous
  Country: US (occurrence: US)
  Receive Date: 20200429
  Receipt Date: 20220105
  Transmission Date: 20220424
  Serious: Yes (Other)
  Sender: FDA-Public Use
  Company Number: US-GILEAD-2020-0462425

PATIENT
  Age: 56 Year
  Sex: Male
  Weight: 77.098 kg

DRUGS (21)
  1. COMPLERA [Suspect]
     Active Substance: EMTRICITABINE\RILPIVIRINE HYDROCHLORIDE\TENOFOVIR DISOPROXIL FUMARATE
     Indication: HIV infection
     Dosage: UNK
     Route: 048
     Dates: start: 201108, end: 201601
  2. COMPLERA [Suspect]
     Active Substance: EMTRICITABINE\RILPIVIRINE HYDROCHLORIDE\TENOFOVIR DISOPROXIL FUMARATE
     Dosage: UNK
     Route: 048
     Dates: start: 201205, end: 201407
  3. BIKTARVY [Concomitant]
     Active Substance: BICTEGRAVIR SODIUM\EMTRICITABINE\TENOFOVIR ALAFENAMIDE FUMARATE
  4. VIAGRA [Concomitant]
     Active Substance: SILDENAFIL CITRATE
  5. ACETAMINOPHEN [Concomitant]
     Active Substance: ACETAMINOPHEN
  6. ASPIRIN [Concomitant]
     Active Substance: ASPIRIN
  7. BACTRIM [Concomitant]
     Active Substance: SULFAMETHOXAZOLE\TRIMETHOPRIM
  8. CIMETIDINE [Concomitant]
     Active Substance: CIMETIDINE
  9. CORTISONE [Concomitant]
     Active Substance: CORTISONE
  10. FAMOTIDINE [Concomitant]
     Active Substance: FAMOTIDINE
  11. FLEET LAXATIVE [Concomitant]
  12. RANITIDINE [Concomitant]
     Active Substance: RANITIDINE
  13. TETRACYCLINE [Concomitant]
     Active Substance: TETRACYCLINE
  14. COMBIVIR [Concomitant]
     Active Substance: LAMIVUDINE\ZIDOVUDINE
  15. RETROVIR [Concomitant]
     Active Substance: ZIDOVUDINE
  16. SELZENTRY [Concomitant]
     Active Substance: MARAVIROC
  17. SUSTIVA [Concomitant]
     Active Substance: EFAVIRENZ
  18. TRIUMEQ [Concomitant]
     Active Substance: ABACAVIR SULFATE\DOLUTEGRAVIR SODIUM\LAMIVUDINE
  19. TRIZIVIR [Concomitant]
     Active Substance: ABACAVIR SULFATE\LAMIVUDINE\ZIDOVUDINE
  20. BUPROPION [Concomitant]
     Active Substance: BUPROPION
  21. PENICILLIN [Concomitant]
     Active Substance: PENICILLIN

REACTIONS (14)
  - Multiple fractures [Not Recovered/Not Resolved]
  - Osteoporosis [Not Recovered/Not Resolved]
  - Bone density decreased [Not Recovered/Not Resolved]
  - Tooth loss [Unknown]
  - Osteopenia [Not Recovered/Not Resolved]
  - Ulna fracture [Unknown]
  - Procedural pain [Unknown]
  - Arthralgia [Unknown]
  - Road traffic accident [Unknown]
  - Emotional distress [Unknown]
  - Bone density abnormal [Unknown]
  - Depression [Unknown]
  - Anxiety [Unknown]
  - Pain [Unknown]

NARRATIVE: CASE EVENT DATE: 20150401
